FAERS Safety Report 19106432 (Version 2)
Quarter: 2021Q2

REPORT INFORMATION
  Report Type: Report from Study
  Country: None (occurrence: US)
  Receive Date: 20210408
  Receipt Date: 20210419
  Transmission Date: 20210717
  Serious: Yes (Hospitalization, Other)
  Sender: FDA-Public Use
  Company Number: US-ABBVIE-21K-163-3845754-00

PATIENT
  Age: 65 Year
  Sex: Male
  Weight: 124.85 kg

DRUGS (4)
  1. PFIZER?BIONTECH COVID?19 VACCINE [Suspect]
     Active Substance: TOZINAMERAN
     Dosage: PFIZER
     Route: 030
     Dates: start: 20210316, end: 20210316
  2. DUOPA [Suspect]
     Active Substance: CARBIDOPA\LEVODOPA
  3. DUOPA [Suspect]
     Active Substance: CARBIDOPA\LEVODOPA
     Indication: PRODUCT USED FOR UNKNOWN INDICATION
     Dosage: 4.63 MG/ML 20 MG/ML
     Route: 050
     Dates: start: 20181107
  4. PFIZER?BIONTECH COVID?19 VACCINE [Suspect]
     Active Substance: TOZINAMERAN
     Indication: COVID-19 IMMUNISATION
     Dosage: PFIZER
     Route: 030
     Dates: start: 20210223, end: 20210223

REACTIONS (19)
  - Asthenia [Recovered/Resolved]
  - Transient ischaemic attack [Recovered/Resolved]
  - Parkinson^s disease [Not Recovered/Not Resolved]
  - Communication disorder [Unknown]
  - COVID-19 [Recovered/Resolved]
  - Unresponsive to stimuli [Recovered/Resolved]
  - Emotional poverty [Recovered/Resolved]
  - Chills [Not Recovered/Not Resolved]
  - Somnolence [Recovered/Resolved]
  - Therapeutic response shortened [Not Recovered/Not Resolved]
  - Cognitive disorder [Not Recovered/Not Resolved]
  - Loss of personal independence in daily activities [Recovered/Resolved]
  - Device leakage [Unknown]
  - Device breakage [Unknown]
  - Gait inability [Recovered/Resolved]
  - Musculoskeletal stiffness [Not Recovered/Not Resolved]
  - Hyperventilation [Recovered/Resolved]
  - Product administration error [Unknown]
  - Stoma site pain [Recovered/Resolved]

NARRATIVE: CASE EVENT DATE: 202006
